FAERS Safety Report 9796563 (Version 3)
Quarter: 2014Q1

REPORT INFORMATION
  Report Type: Spontaneous
  Country: JP (occurrence: JP)
  Receive Date: 20140103
  Receipt Date: 20140219
  Transmission Date: 20141002
  Serious: Yes (Hospitalization)
  Sender: FDA-Public Use
  Company Number: JP-BAYER-2013-137818

PATIENT
  Age: 76 Year
  Sex: Female
  Weight: 37 kg

DRUGS (8)
  1. STIVARGA [Suspect]
     Indication: COLORECTAL CANCER
     Dosage: 120 MG, QD
     Route: 048
     Dates: start: 20131008, end: 20131028
  2. STIVARGA [Suspect]
     Indication: COLORECTAL CANCER
     Dosage: 120 MG, QD
     Route: 048
     Dates: start: 20131107, end: 20131120
  3. STIVARGA [Suspect]
     Indication: COLORECTAL CANCER
     Dosage: 120 MG, QD
     Route: 048
     Dates: start: 20131212, end: 20131225
  4. ALDACTONE A [Concomitant]
     Indication: PROPHYLAXIS
     Dosage: DAILY DOSE 25 MG
     Route: 048
  5. NEXIUM [Concomitant]
     Indication: PROPHYLAXIS
     Dosage: DAILY DOSE 20 MG
     Route: 048
  6. MAGMITT [Concomitant]
     Indication: PROPHYLAXIS
     Dosage: DAILY DOSE 500 MG
     Route: 048
  7. OXYCONTIN [Concomitant]
     Indication: RECTAL CANCER
     Dosage: DAILY DOSE 10 MG
     Route: 048
  8. DECADRON [Concomitant]
     Indication: RECTAL CANCER
     Dosage: DAILY DOSE .5 MG
     Route: 048

REACTIONS (5)
  - Dehydration [Not Recovered/Not Resolved]
  - Nausea [Recovered/Resolved]
  - Vomiting [Recovered/Resolved]
  - Palmar-plantar erythrodysaesthesia syndrome [Not Recovered/Not Resolved]
  - Decreased appetite [Recovering/Resolving]
